FAERS Safety Report 21059390 (Version 1)
Quarter: 2022Q3

REPORT INFORMATION
  Report Type: Spontaneous
  Country: US (occurrence: None)
  Receive Date: 20220708
  Receipt Date: 20220708
  Transmission Date: 20221027
  Serious: No
  Sender: FDA-Public Use
  Company Number: None

PATIENT
  Age: 70 Year
  Sex: Female
  Weight: 78.93 kg

DRUGS (13)
  1. ETOPOSIDE [Suspect]
     Active Substance: ETOPOSIDE
     Indication: Ovarian cancer
     Dosage: OTHER FREQUENCY : 3W, 1W OFF;?
     Route: 048
  2. Astragalus [Concomitant]
  3. VITAMIN B COMPLEX [Concomitant]
     Active Substance: CYANOCOBALAMIN\DEXPANTHENOL\NIACINAMIDE\PYRIDOXINE HYDROCHLORIDE\RIBOFLAVIN 5^-PHOSPHATE SODIUM\THIA
  4. CHOLECALCIFEROL [Concomitant]
  5. CLARITIN [Concomitant]
     Active Substance: LORATADINE
  6. IBUPROFEN [Concomitant]
     Active Substance: IBUPROFEN
  7. LOSARTAN [Concomitant]
     Active Substance: LOSARTAN
  8. Magnesium Oxide Melatonin [Concomitant]
  9. Norvasc Pantoprazole Polyethylene Glycol [Concomitant]
  10. PROBIOTICS NOS [Concomitant]
     Active Substance: PROBIOTICS NOS
  11. HERBALS\TURMERIC [Concomitant]
     Active Substance: HERBALS\TURMERIC
  12. VITAMIN C [Concomitant]
     Active Substance: ASCORBIC ACID
  13. ZINC [Concomitant]
     Active Substance: ZINC

REACTIONS (2)
  - Full blood count decreased [None]
  - Transfusion [None]
